FAERS Safety Report 4943587-2 (Version None)
Quarter: 2006Q1

REPORT INFORMATION
  Report Type: 
  Country: None (occurrence: None)
  Receive Date: 20060310
  Receipt Date: 20060221
  Transmission Date: 20060701
  Serious: Yes (Hospitalization)
  Sender: FDA-Public Use
  Company Number: 6020779

PATIENT
  Age: 79 Year
  Sex: Female

DRUGS (4)
  1. LEVOTHYROXINE SODIUM [Suspect]
     Indication: THYROIDECTOMY
     Dosage: 175,000 MCG (175 MCG, 1 IN 1 D)
  2. WARFARIN SODIUM [Concomitant]
  3. CO-AMILOFRUSE (FUROSEMIDE, AMILORIDE HYDROCHLORIDE) [Concomitant]
  4. SIMVASTATIN [Concomitant]

REACTIONS (22)
  - AGITATION [None]
  - ANXIETY [None]
  - ATRIAL FIBRILLATION [None]
  - BLOOD CREATINE PHOSPHOKINASE INCREASED [None]
  - BLOOD THYROID STIMULATING HORMONE INCREASED [None]
  - BRAIN SCAN ABNORMAL [None]
  - CHOREA [None]
  - CREPITATIONS [None]
  - DYSARTHRIA [None]
  - DYSPHAGIA [None]
  - DYSPNOEA [None]
  - GAIT DISTURBANCE [None]
  - HYPERHIDROSIS [None]
  - HYPERTHYROIDISM [None]
  - INTERNATIONAL NORMALISED RATIO INCREASED [None]
  - PALPITATIONS [None]
  - RENAL IMPAIRMENT [None]
  - RESTLESSNESS [None]
  - SPEECH DISORDER [None]
  - TEMPERATURE INTOLERANCE [None]
  - THYROXINE FREE INCREASED [None]
  - VENOUS PRESSURE JUGULAR INCREASED [None]
